FAERS Safety Report 17886324 (Version 1)
Quarter: 2020Q2

REPORT INFORMATION
  Report Type: Spontaneous
  Country: US (occurrence: US)
  Receive Date: 20200611
  Receipt Date: 20200611
  Transmission Date: 20200714
  Serious: Yes (Other)
  Sender: FDA-Public Use
  Company Number: US-ALLERGAN-2022216US

PATIENT
  Sex: Male

DRUGS (2)
  1. TAMSULOSIN [Suspect]
     Active Substance: TAMSULOSIN
     Indication: NEPHROLITHIASIS
  2. HYDROCHLOROTHIAZIDE UNK [Suspect]
     Active Substance: HYDROCHLOROTHIAZIDE
     Indication: NEPHROLITHIASIS

REACTIONS (5)
  - Tachycardia [Unknown]
  - Off label use [Unknown]
  - Aortic stenosis [Unknown]
  - Arrhythmia [Unknown]
  - Dizziness [Unknown]
